FAERS Safety Report 5247324-6 (Version None)
Quarter: 2007Q1

REPORT INFORMATION
  Report Type: 
  Country: None (occurrence: None)
  Receive Date: 20070223
  Receipt Date: 20070223
  Transmission Date: 20070707
  Serious: Yes (Death)
  Sender: FDA-Public Use
  Company Number: None

PATIENT
  Age: 19 Month
  Sex: Male
  Weight: 9.4 kg

DRUGS (1)
  1. AMPICILLIN [Suspect]
     Indication: BLOOD CULTURE POSITIVE
     Dosage: 500MG  Q6H IV
     Route: 042
     Dates: start: 20070210, end: 20070212

REACTIONS (8)
  - CARDIAC FAILURE [None]
  - GENERAL PHYSICAL HEALTH DETERIORATION [None]
  - HYPOTENSION [None]
  - MYOCARDITIS [None]
  - PAIN [None]
  - STEVENS-JOHNSON SYNDROME [None]
  - TACHYCARDIA [None]
  - TACHYPNOEA [None]
